FAERS Safety Report 7137937-9 (Version None)
Quarter: 2010Q4

REPORT INFORMATION
  Report Type: 
  Country: None (occurrence: None)
  Receive Date: 20101103
  Receipt Date: 20100510
  Transmission Date: 20110411
  Serious: Yes (Other)
  Sender: FDA-Public Use
  Company Number: US-WYE-H15078110

PATIENT
  Age: 59 Year
  Sex: Male
  Weight: 91.25 kg

DRUGS (3)
  1. EFFEXOR XR [Suspect]
     Indication: MAJOR DEPRESSION
     Dosage: 300 MG 1X PER 1 DAY, ORAL
     Route: 048
     Dates: start: 20090101
  2. FLUVOXAMINE MALEATE [Concomitant]
  3. SEROQUEL [Concomitant]

REACTIONS (2)
  - CHOKING [None]
  - COUGH [None]
